FAERS Safety Report 10400971 (Version 1)
Quarter: 2014Q3

REPORT INFORMATION
  Report Type: Report from Study
  Country: BR (occurrence: BR)
  Receive Date: 20140821
  Receipt Date: 20140821
  Transmission Date: 20150326
  Serious: Yes (Other)
  Sender: FDA-Public Use
  Company Number: PHHY2014BR104342

PATIENT
  Sex: Female
  Weight: 58 kg

DRUGS (5)
  1. NAZONEX [Concomitant]
     Indication: SINUSITIS
     Dosage: UNK UKN, UNK
     Dates: start: 20140220
  2. FORASEQ [Suspect]
     Active Substance: BUDESONIDE\FORMOTEROL FUMARATE
     Indication: BRONCHITIS
  3. ACETYLCYSTEINE. [Suspect]
     Active Substance: ACETYLCYSTEINE
     Indication: SECRETION DISCHARGE
     Dosage: UNK UKN, QD (ONCE DAILY, AT NIGHT)
     Route: 048
     Dates: start: 20140220
  4. FORASEQ [Suspect]
     Active Substance: BUDESONIDE\FORMOTEROL FUMARATE
     Indication: NASOPHARYNGITIS
     Dosage: 2 DF, BID (2 IN THE MORNING AND 2 AT NIGH)
     Route: 055
     Dates: start: 20140220, end: 201403
  5. PREDSIM [Concomitant]
     Active Substance: PREDNISOLONE
     Indication: LUNG DISORDER
     Dosage: 1 DF, QD (1 TABLET AFTER BREAKFAST, DURING 6 MONTHS)
     Dates: start: 20140220, end: 20140226

REACTIONS (9)
  - Feeling abnormal [Not Recovered/Not Resolved]
  - Lower gastrointestinal haemorrhage [Not Recovered/Not Resolved]
  - Anxiety [Not Recovered/Not Resolved]
  - Allergic cough [Not Recovered/Not Resolved]
  - Dyspnoea [Not Recovered/Not Resolved]
  - Secretion discharge [Not Recovered/Not Resolved]
  - Irritable bowel syndrome [Not Recovered/Not Resolved]
  - Bronchitis [Not Recovered/Not Resolved]
  - Nasopharyngitis [Not Recovered/Not Resolved]
